FAERS Safety Report 5482448-X (Version None)
Quarter: 2007Q4

REPORT INFORMATION
  Report Type: 
  Country: None (occurrence: None)
  Receive Date: 20071011
  Receipt Date: 20071003
  Transmission Date: 20080405
  Serious: Yes (Death, Other)
  Sender: FDA-Public Use
  Company Number: CA-MERCK-0710USA01020

PATIENT
  Age: 45 Year
  Sex: Female

DRUGS (2)
  1. ALDOMET [Suspect]
     Route: 048
  2. PROSTIGMIN BROMIDE [Suspect]
     Route: 065

REACTIONS (3)
  - COMPLETED SUICIDE [None]
  - MULTIPLE DRUG OVERDOSE INTENTIONAL [None]
  - OVERDOSE [None]
